FAERS Safety Report 13167397 (Version 3)
Quarter: 2017Q1

REPORT INFORMATION
  Report Type: Spontaneous
  Country: JP (occurrence: JP)
  Receive Date: 20170131
  Receipt Date: 20170210
  Transmission Date: 20170428
  Serious: Yes (Hospitalization, Other)
  Sender: FDA-Public Use
  Company Number: JP-GLAXOSMITHKLINE-JP2017012500

PATIENT
  Age: 78 Year
  Sex: Male

DRUGS (16)
  1. AZOSEMIDE [Concomitant]
     Active Substance: AZOSEMIDE
  2. FERROUS SODIUM CITRATE [Concomitant]
     Active Substance: SODIUM FERROUS CITRATE
  3. CLARITHROMYCIN. [Interacting]
     Active Substance: CLARITHROMYCIN
     Indication: PRODUCTIVE COUGH
  4. WARFARIN [Concomitant]
     Active Substance: WARFARIN
  5. ISOSORBIDE DINITRATE. [Concomitant]
     Active Substance: ISOSORBIDE DINITRATE
  6. CLARITHROMYCIN. [Interacting]
     Active Substance: CLARITHROMYCIN
  7. NIFEDIPINE. [Interacting]
     Active Substance: NIFEDIPINE
  8. SITAGLIPTIN [Concomitant]
     Active Substance: SITAGLIPTIN
  9. NIFEDIPINE. [Interacting]
     Active Substance: NIFEDIPINE
     Indication: HYPERTENSION
  10. RANITIDINE. [Concomitant]
     Active Substance: RANITIDINE
  11. DIPYRIDAMOLE. [Concomitant]
     Active Substance: DIPYRIDAMOLE
  12. DILTIAZEM. [Interacting]
     Active Substance: DILTIAZEM
     Indication: HYPERTENSION
  13. DILTIAZEM. [Interacting]
     Active Substance: DILTIAZEM
  14. CARVEDILOL. [Suspect]
     Active Substance: CARVEDILOL
  15. CARVEDILOL. [Suspect]
     Active Substance: CARVEDILOL
  16. IRBESARTAN. [Concomitant]
     Active Substance: IRBESARTAN

REACTIONS (5)
  - Blood creatinine increased [Recovered/Resolved]
  - Drug interaction [Recovering/Resolving]
  - Bradycardia [Recovered/Resolved]
  - Hypotension [Recovering/Resolving]
  - Hypotension [Recovering/Resolving]

NARRATIVE: CASE EVENT DATE: 20160302
